FAERS Safety Report 6912035-5 (Version None)
Quarter: 2010Q3

REPORT INFORMATION
  Report Type: 
  Country: None (occurrence: None)
  Receive Date: 20100806
  Receipt Date: 20071016
  Transmission Date: 20110219
  Serious: No
  Sender: FDA-Public Use
  Company Number: US-PFIZER INC-2007088442

PATIENT
  Age: 75 Year
  Sex: Female

DRUGS (2)
  1. DETROL LA [Suspect]
  2. DITROPAN [Concomitant]

REACTIONS (1)
  - FAECES DISCOLOURED [None]
